FAERS Safety Report 21758907 (Version 2)
Quarter: 2023Q1

REPORT INFORMATION
  Report Type: Spontaneous
  Country: JP (occurrence: JP)
  Receive Date: 20221221
  Receipt Date: 20230130
  Transmission Date: 20230418
  Serious: Yes (Death, Other)
  Sender: FDA-Public Use
  Company Number: JP-002147023-NVSJ2022JP276538

PATIENT
  Age: 77 Year
  Sex: Female

DRUGS (2)
  1. TAFINLAR [Suspect]
     Active Substance: DABRAFENIB MESYLATE
     Indication: Non-small cell lung cancer
     Dosage: UNK
     Route: 048
     Dates: start: 20220404, end: 202301
  2. MEKINIST [Suspect]
     Active Substance: TRAMETINIB DIMETHYL SULFOXIDE
     Indication: Non-small cell lung cancer
     Dosage: UNK
     Route: 048
     Dates: start: 20220404, end: 202301

REACTIONS (4)
  - Non-small cell lung cancer [Fatal]
  - Malignant neoplasm progression [Fatal]
  - Malignant pleural effusion [Recovered/Resolved]
  - Malignant pleural effusion [Unknown]

NARRATIVE: CASE EVENT DATE: 20221201
